FAERS Safety Report 16827153 (Version 1)
Quarter: 2019Q3

REPORT INFORMATION
  Report Type: Spontaneous
  Country: GB (occurrence: GB)
  Receive Date: 20190919
  Receipt Date: 20190919
  Transmission Date: 20191005
  Serious: Yes (Death)
  Sender: FDA-Public Use
  Company Number: GB-ROCHE-2409792

PATIENT
  Age: 76 Year
  Sex: Male
  Weight: 70.2 kg

DRUGS (1)
  1. ESBRIET [Suspect]
     Active Substance: PIRFENIDONE
     Indication: IDIOPATHIC PULMONARY FIBROSIS
     Route: 048
     Dates: start: 20160630, end: 20190331

REACTIONS (1)
  - Death [Fatal]

NARRATIVE: CASE EVENT DATE: 20190331
